FAERS Safety Report 4987597-8 (Version None)
Quarter: 2006Q2

REPORT INFORMATION
  Report Type: 
  Country: None (occurrence: None)
  Receive Date: 20060501
  Receipt Date: 20060419
  Transmission Date: 20061013
  Serious: Yes (Other)
  Sender: FDA-Public Use
  Company Number: JP-NOVOPROD-252870

PATIENT
  Age: 27 Year
  Sex: Male

DRUGS (1)
  1. NORDITROPIN SIMPLEXX [Suspect]
     Indication: HYPOPITUITARISM

REACTIONS (5)
  - CEREBROVASCULAR INSUFFICIENCY [None]
  - EPISTAXIS [None]
  - INAPPROPRIATE ANTIDIURETIC HORMONE SECRETION [None]
  - MALAISE [None]
  - MUSCULOSKELETAL STIFFNESS [None]
